FAERS Safety Report 24241100 (Version 4)
Quarter: 2025Q1

REPORT INFORMATION
  Report Type: Spontaneous
  Country: BR (occurrence: BR)
  Receive Date: 20240823
  Receipt Date: 20250212
  Transmission Date: 20250409
  Serious: Yes (Death, Hospitalization, Other)
  Sender: JOHNSON AND JOHNSON
  Company Number: BR-JNJFOC-20240851663

PATIENT
  Age: 70 Year
  Sex: Female

DRUGS (3)
  1. TALVEY [Suspect]
     Active Substance: TALQUETAMAB-TGVS
     Indication: Plasma cell myeloma
     Dosage: FIRST 2 ESCALATION DOSES (0.01 AND 0.06)
     Route: 058
     Dates: start: 20240814
  2. ATENOLOL [Concomitant]
     Active Substance: ATENOLOL
  3. HEPARIN [Concomitant]
     Active Substance: HEPARIN SODIUM

REACTIONS (4)
  - Death [Fatal]
  - Haemorrhagic stroke [Unknown]
  - Hypotension [Unknown]
  - Plasma cell myeloma [Unknown]

NARRATIVE: CASE EVENT DATE: 20240817
